FAERS Safety Report 15242924 (Version 2)
Quarter: 2018Q3

REPORT INFORMATION
  Report Type: Report from Study
  Country: KR (occurrence: KR)
  Receive Date: 20180806
  Receipt Date: 20180814
  Transmission Date: 20181010
  Serious: Yes (Death)
  Sender: FDA-Public Use
  Company Number: KR-JNJFOC-20180739045

PATIENT
  Age: 36 Year
  Sex: Female
  Weight: 42 kg

DRUGS (8)
  1. INDENOL [Concomitant]
     Active Substance: PROPRANOLOL HYDROCHLORIDE
     Indication: PROPHYLAXIS
     Route: 065
     Dates: start: 201806, end: 20180718
  2. SLIVAN [Concomitant]
     Indication: SCHIZOPHRENIA
     Route: 065
     Dates: start: 201806, end: 20180718
  3. ALPRAZOLAM. [Concomitant]
     Active Substance: ALPRAZOLAM
     Indication: SCHIZOPHRENIA
     Route: 065
     Dates: start: 201806, end: 20180718
  4. INVEGA SUSTENNA [Suspect]
     Active Substance: PALIPERIDONE PALMITATE
     Indication: SCHIZOPHRENIA
     Route: 030
     Dates: start: 20180709
  5. MAGMIL [Concomitant]
     Active Substance: MAGNESIUM HYDROXIDE
     Indication: CONSTIPATION PROPHYLAXIS
     Route: 065
     Dates: start: 201806, end: 20180718
  6. PMS QUETIAPINE [Concomitant]
     Indication: SCHIZOPHRENIA
     Route: 065
     Dates: start: 201806, end: 20180718
  7. SYNTHROID [Concomitant]
     Active Substance: LEVOTHYROXINE SODIUM
     Indication: HYPOTHYROIDISM
     Route: 065
     Dates: start: 201806, end: 20180718
  8. INVEGA SUSTENNA [Suspect]
     Active Substance: PALIPERIDONE PALMITATE
     Indication: SCHIZOPHRENIA
     Route: 030
     Dates: start: 20180702

REACTIONS (1)
  - Water intoxication [Fatal]

NARRATIVE: CASE EVENT DATE: 20180718
